FAERS Safety Report 23905315 (Version 1)
Quarter: 2024Q2

REPORT INFORMATION
  Report Type: Spontaneous
  Country: US (occurrence: US)
  Receive Date: 20240527
  Receipt Date: 20240527
  Transmission Date: 20240716
  Serious: No
  Sender: FDA-Public Use
  Company Number: US-SA-SAC20240521000318

PATIENT
  Age: 2 Year
  Sex: Female
  Weight: 13 kg

DRUGS (4)
  1. DUPIXENT [Suspect]
     Active Substance: DUPILUMAB
     Indication: Dermatitis atopic
     Dosage: 200 MG, OTHER
     Route: 058
     Dates: start: 20230807
  2. HYDROCORTISONE [Concomitant]
     Active Substance: HYDROCORTISONE
     Dosage: UNK
  3. MOMETASONE [Concomitant]
     Active Substance: MOMETASONE
     Dosage: UNK
  4. AQUAFOR [Concomitant]
     Dosage: UNK

REACTIONS (3)
  - Dermatitis atopic [Unknown]
  - Dry skin [Unknown]
  - Skin irritation [Unknown]
